FAERS Safety Report 24429345 (Version 1)
Quarter: 2024Q4

REPORT INFORMATION
  Report Type: Spontaneous
  Country: GB (occurrence: GB)
  Receive Date: 20241011
  Receipt Date: 20241011
  Transmission Date: 20250114
  Serious: Yes (Other)
  Sender: TEVA
  Company Number: GB-MHRA-TPP12148204C3208517YC1727688958967

PATIENT
  Age: 76 Year
  Sex: Male
  Weight: 115 kg

DRUGS (12)
  1. DICLOFENAC SODIUM [Suspect]
     Active Substance: DICLOFENAC SODIUM
     Indication: Ill-defined disorder
     Dosage: (ACTINIC KERATOSIS ONLY)
     Route: 065
     Dates: start: 20240905
  2. POTASSIUM BICARBONATE\SODIUM ALGINATE [Concomitant]
     Active Substance: POTASSIUM BICARBONATE\SODIUM ALGINATE
     Indication: Ill-defined disorder
     Dosage: 5ML - 10ML
     Route: 065
     Dates: start: 20240614
  3. FLUCLOXACILLIN [Concomitant]
     Active Substance: FLUCLOXACILLIN
     Indication: Ill-defined disorder
     Route: 065
     Dates: start: 20240930
  4. ESOMEPRAZOLE [Concomitant]
     Active Substance: ESOMEPRAZOLE
     Indication: Ill-defined disorder
     Route: 065
     Dates: start: 20240212
  5. FINASTERIDE [Concomitant]
     Active Substance: FINASTERIDE
     Indication: Ill-defined disorder
     Route: 065
     Dates: start: 20240614
  6. OILATUM [Concomitant]
     Indication: Ill-defined disorder
     Dosage: APPLY AS NEEDED
     Route: 065
     Dates: start: 20240516
  7. POLYETHYLENE GLYCOL 3350\POTASSIUM CHLORIDE\SODIUM BICARBONATE\SODIUM [Concomitant]
     Active Substance: POLYETHYLENE GLYCOL 3350\POTASSIUM CHLORIDE\SODIUM BICARBONATE\SODIUM CHLORIDE
     Indication: Ill-defined disorder
     Dosage: 1-2 SACHETS
     Route: 065
     Dates: start: 20230714
  8. FELODIPINE [Concomitant]
     Active Substance: FELODIPINE
     Indication: Ill-defined disorder
     Route: 065
     Dates: start: 20240614, end: 20240822
  9. FLUTICASONE PROPIONATE [Concomitant]
     Active Substance: FLUTICASONE PROPIONATE
     Indication: Ill-defined disorder
     Dosage: EACH NOSTRIL
     Route: 065
     Dates: start: 20240905
  10. PROPRANOLOL [Concomitant]
     Active Substance: PROPRANOLOL HYDROCHLORIDE
     Indication: Ill-defined disorder
     Route: 065
     Dates: start: 20240806, end: 20240813
  11. ROSUVASTATIN [Concomitant]
     Active Substance: ROSUVASTATIN
     Indication: Ill-defined disorder
     Route: 065
     Dates: start: 20240419
  12. SOLIFENACIN [Concomitant]
     Active Substance: SOLIFENACIN
     Indication: Ill-defined disorder
     Route: 065
     Dates: start: 20240614

REACTIONS (1)
  - Cellulitis [Recovering/Resolving]
